APPROVED DRUG PRODUCT: GABAPENTIN
Active Ingredient: GABAPENTIN
Strength: 400MG
Dosage Form/Route: CAPSULE;ORAL
Application: A075477 | Product #003 | TE Code: AB
Applicant: CSPC OUYI PHARMACEUTICAL CO LTD
Approved: Mar 23, 2005 | RLD: No | RS: No | Type: RX